FAERS Safety Report 15149804 (Version 1)
Quarter: 2018Q3

REPORT INFORMATION
  Report Type: Report from Study
  Country: IT (occurrence: IT)
  Receive Date: 20180716
  Receipt Date: 20180716
  Transmission Date: 20181010
  Serious: Yes (Other)
  Sender: FDA-Public Use
  Company Number: IT-PURDUE PHARMA-GBR-2018-0057639

PATIENT
  Age: 82 Year
  Sex: Female

DRUGS (12)
  1. LIORESAL [Suspect]
     Active Substance: BACLOFEN
     Indication: HYPERTONIA
     Route: 048
  2. FUROSEMIDE. [Concomitant]
     Active Substance: FUROSEMIDE
  3. COUMADIN [Concomitant]
     Active Substance: WARFARIN SODIUM
  4. CONTRAMAL [Suspect]
     Active Substance: TRAMADOL HYDROCHLORIDE
     Indication: PAIN
     Route: 048
  5. CIPRALEX [Concomitant]
     Active Substance: ESCITALOPRAM OXALATE
  6. CARDURA [Concomitant]
     Active Substance: DOXAZOSIN MESYLATE
  7. CICLOSPORIN [Concomitant]
     Active Substance: CYCLOSPORINE
  8. NORVASC [Concomitant]
     Active Substance: AMLODIPINE BESYLATE
  9. DELORAZEPAM [Concomitant]
     Active Substance: DELORAZEPAM
  10. ALLOPURINOLO [Concomitant]
     Active Substance: ALLOPURINOL
  11. TARGIN [Suspect]
     Active Substance: NALOXONE HYDROCHLORIDE\OXYCODONE HYDROCHLORIDE
     Indication: PAIN
     Route: 048
  12. LUVION                             /00252501/ [Concomitant]
     Active Substance: CANRENOIC ACID

REACTIONS (3)
  - Hypercreatinaemia [Recovering/Resolving]
  - Pain [Recovering/Resolving]
  - Sopor [Recovering/Resolving]

NARRATIVE: CASE EVENT DATE: 20180319
